FAERS Safety Report 10079531 (Version 1)
Quarter: 2014Q2

REPORT INFORMATION
  Report Type: Spontaneous
  Country: FR (occurrence: FR)
  Receive Date: 20140415
  Receipt Date: 20140415
  Transmission Date: 20141212
  Serious: Yes (Hospitalization, Disabling, Other)
  Sender: FDA-Public Use
  Company Number: FR-WATSON-2014-07191

PATIENT
  Age: 58 Year
  Sex: Male

DRUGS (1)
  1. BACLOFEN [Suspect]
     Indication: ALCOHOLISM
     Dosage: 200 MG, DAILY (SLOWLY INCREASED FROM 10 MG DAILY)
     Route: 048
     Dates: start: 201207

REACTIONS (5)
  - Paralysis flaccid [Recovered/Resolved]
  - Confusional state [Recovered/Resolved]
  - Memory impairment [Recovered/Resolved]
  - Urinary incontinence [Recovered/Resolved]
  - Intentional overdose [Recovered/Resolved]
